FAERS Safety Report 22956384 (Version 2)
Quarter: 2025Q1

REPORT INFORMATION
  Report Type: Spontaneous
  Country: US (occurrence: US)
  Receive Date: 20230919
  Receipt Date: 20250205
  Transmission Date: 20250408
  Serious: No
  Sender: ROCHE
  Company Number: US-ROCHE-3423643

PATIENT
  Age: 59 Year
  Sex: Male
  Weight: 87.54 kg

DRUGS (3)
  1. OCREVUS [Suspect]
     Active Substance: OCRELIZUMAB
     Indication: Multiple sclerosis
     Dosage: LAST INFUSION AUGUST 31ST.
     Route: 065
     Dates: start: 2018
  2. TIZANIDINE [Concomitant]
     Active Substance: TIZANIDINE
  3. AMPYRA [Concomitant]
     Active Substance: DALFAMPRIDINE

REACTIONS (8)
  - Accident [Unknown]
  - Spinal cord disorder [Unknown]
  - COVID-19 [Not Recovered/Not Resolved]
  - Pain [Unknown]
  - General physical health deterioration [Unknown]
  - Swelling [Unknown]
  - Head injury [Unknown]
  - Balance disorder [Unknown]
